FAERS Safety Report 9690139 (Version 1)
Quarter: 2013Q4

REPORT INFORMATION
  Report Type: Spontaneous
  Country: JP (occurrence: JP)
  Receive Date: 20131115
  Receipt Date: 20131115
  Transmission Date: 20140711
  Serious: Yes (Other)
  Sender: FDA-Public Use
  Company Number: PHHY2013JP130173

PATIENT
  Age: 1 Year
  Sex: Male

DRUGS (3)
  1. CICLOSPORIN [Suspect]
     Indication: NEPHROTIC SYNDROME
     Route: 048
  2. PREDNISOLONE [Suspect]
     Indication: NEPHROTIC SYNDROME
  3. STEROID [Suspect]
     Indication: NEPHROTIC SYNDROME

REACTIONS (4)
  - Renal failure acute [Unknown]
  - Nephrotic syndrome [Unknown]
  - Anuria [Unknown]
  - Drug ineffective [Unknown]
